FAERS Safety Report 8111508-X (Version None)
Quarter: 2012Q1

REPORT INFORMATION
  Report Type: 
  Country: None (occurrence: None)
  Receive Date: 20120131
  Receipt Date: 20120117
  Transmission Date: 20120608
  Serious: Yes (Hospitalization)
  Sender: FDA-Public Use
  Company Number: AEUSA201200022

PATIENT
  Age: 59 Year
  Sex: Male
  Weight: 90.27 kg

DRUGS (20)
  1. XOPENEX [Concomitant]
  2. IPRATROPIUM BROMIDE [Concomitant]
  3. AMBIEN [Concomitant]
  4. VICODIN [Concomitant]
  5. IMMUNE GLOBULIN (HUMAN) [Suspect]
     Indication: IMMUNODEFICIENCY COMMON VARIABLE
     Dosage: 10 GM, 1X,IV
     Route: 042
     Dates: start: 20120117, end: 20120117
  6. NEBIVOLOL [Concomitant]
  7. HYOSCYAMINE [Concomitant]
  8. VYTORIN [Concomitant]
  9. METHOTREXATE [Concomitant]
  10. ZLLEGRA-D [Concomitant]
  11. CYMBALTA [Concomitant]
  12. PLAVIX [Concomitant]
  13. NASACORT AQ [Concomitant]
  14. IBUPROFEN [Concomitant]
  15. BENADRYL [Concomitant]
  16. ONDANSETRON HCL [Concomitant]
  17. SYMBICORT [Concomitant]
  18. NEXIUM [Concomitant]
  19. DOXEPIN HCL [Concomitant]
  20. SOLU-MEDROL [Concomitant]

REACTIONS (5)
  - HEART RATE INCREASED [None]
  - CHEST PAIN [None]
  - BODY TEMPERATURE DECREASED [None]
  - DYSPNOEA [None]
  - BLOOD PRESSURE SYSTOLIC INCREASED [None]
